FAERS Safety Report 6299353-1 (Version None)
Quarter: 2009Q3

REPORT INFORMATION
  Report Type: 
  Country: None (occurrence: None)
  Receive Date: 20090806
  Receipt Date: 20090724
  Transmission Date: 20100115
  Serious: Yes (Hospitalization)
  Sender: FDA-Public Use
  Company Number: BR-ROCHE-639025

PATIENT
  Sex: Female
  Weight: 51 kg

DRUGS (2)
  1. CAPECITABINE [Suspect]
     Dosage: REPORTED THAT PATIENT HAD FINISHED THE XELODA INTAKE (3RD CYCLE) ON 09 JUNE 2009.
     Route: 065
     Dates: start: 20090414
  2. BEPANTOL [Suspect]
     Indication: PROPHYLAXIS
     Dosage: INDICATION AS PER PROTOCOL: PROPHYLAXIS OF HAND AND FOOT SYNDROME
     Route: 061
     Dates: start: 20090414

REACTIONS (2)
  - URINARY TRACT INFECTION [None]
  - VASCULAR OCCLUSION [None]
